FAERS Safety Report 9242430 (Version 2)
Quarter: 2013Q2

REPORT INFORMATION
  Report Type: Spontaneous
  Country: US (occurrence: US)
  Receive Date: 20130419
  Receipt Date: 20130514
  Transmission Date: 20140414
  Serious: No
  Sender: FDA-Public Use
  Company Number: US-PFIZER INC-2013121586

PATIENT
  Age: 68 Year
  Sex: Female
  Weight: 79 kg

DRUGS (3)
  1. TIKOSYN [Suspect]
     Indication: ATRIAL FIBRILLATION
     Dosage: 500 UG, 2X/DAY
     Route: 048
     Dates: start: 20121109
  2. TIKOSYN [Suspect]
     Indication: VENTRICULAR TACHYCARDIA
  3. NEXIUM [Suspect]

REACTIONS (1)
  - Dyspepsia [Unknown]
